FAERS Safety Report 5147841-3 (Version None)
Quarter: 2006Q4

REPORT INFORMATION
  Report Type: 
  Country: None (occurrence: None)
  Receive Date: 20060914
  Receipt Date: 20060302
  Transmission Date: 20070319
  Serious: Yes (Life-Threatening)
  Sender: FDA-Public Use
  Company Number: 1-13660919

PATIENT
  Age: 78 Year
  Sex: Male

DRUGS (3)
  1. SULFAMETHOXAZOLE AND TRIMETHOPRIM [Suspect]
     Indication: URINARY TRACT INFECTION
     Dosage: ONE TABLET, ONCE DAILY , ORAL
     Route: 048
     Dates: start: 20060115, end: 20060301
  2. UROXATRAL [Concomitant]
  3. BENICAR [Concomitant]

REACTIONS (4)
  - CONDITION AGGRAVATED [None]
  - LEUKOPENIA [None]
  - LYMPHOMA [None]
  - THROMBOCYTOPENIA [None]
